FAERS Safety Report 24273655 (Version 1)
Quarter: 2024Q3

REPORT INFORMATION
  Report Type: Spontaneous
  Country: US (occurrence: US)
  Receive Date: 20240902
  Receipt Date: 20240902
  Transmission Date: 20241016
  Serious: Yes (Other)
  Sender: ASTELLAS
  Company Number: US-ASTELLAS-2024US008349

PATIENT
  Age: 73 Year
  Sex: Male
  Weight: 81.6 kg

DRUGS (4)
  1. PADCEV [Suspect]
     Active Substance: ENFORTUMAB VEDOTIN-EJFV
     Indication: Transitional cell carcinoma
     Dosage: UNK UNK, UNKNOWN FREQ. (HIGHER DOSE)
     Route: 042
     Dates: start: 20220601
  2. PADCEV [Suspect]
     Active Substance: ENFORTUMAB VEDOTIN-EJFV
     Dosage: UNK UNK, UNKNOWN FREQ. (DOSE HAS BEEN DECREASED ON TWO DIFFERENT OCCASIONS (DOSAGE WAS UNKNOWN))
     Route: 042
  3. PADCEV [Suspect]
     Active Substance: ENFORTUMAB VEDOTIN-EJFV
     Dosage: UNK UNK, UNKNOWN FREQ. (DOSE HAS BEEN DECREASED ON TWO DIFFERENT OCCASIONS (DOSAGE WAS UNKNOWN))
     Route: 042
  4. KEYTRUDA [Concomitant]
     Active Substance: PEMBROLIZUMAB
     Indication: Product used for unknown indication
     Dosage: UNK UNK, UNKNOWN FREQ.
     Route: 065

REACTIONS (12)
  - Weight decreased [Recovering/Resolving]
  - Neuropathy peripheral [Not Recovered/Not Resolved]
  - Diarrhoea [Recovered/Resolved]
  - Infection [Unknown]
  - COVID-19 [Recovered/Resolved]
  - Ageusia [Unknown]
  - Anosmia [Unknown]
  - Asthenia [Unknown]
  - Depression [Recovering/Resolving]
  - Balance disorder [Unknown]
  - Muscle atrophy [Recovering/Resolving]
  - Pyrexia [Unknown]

NARRATIVE: CASE EVENT DATE: 20220601
